FAERS Safety Report 20650767 (Version 7)
Quarter: 2023Q1

REPORT INFORMATION
  Report Type: Spontaneous
  Country: US (occurrence: US)
  Receive Date: 20220329
  Receipt Date: 20230112
  Transmission Date: 20230417
  Serious: Yes (Life-Threatening, Hospitalization, Other)
  Sender: FDA-Public Use
  Company Number: US-PFIZER INC-202200441205

PATIENT
  Age: 73 Year
  Sex: Female
  Weight: 114.7 kg

DRUGS (3)
  1. ESTRING [Suspect]
     Active Substance: ESTRADIOL
     Indication: Vulvovaginal dryness
     Dosage: 20 MG
     Dates: start: 202208
  2. ESTRING [Suspect]
     Active Substance: ESTRADIOL
     Indication: Oestrogen therapy
  3. ESTRING [Suspect]
     Active Substance: ESTRADIOL
     Indication: Vaginal pessary insertion

REACTIONS (7)
  - Coma [Unknown]
  - Choking [Unknown]
  - Vaginal haemorrhage [Recovered/Resolved]
  - Tremor [Not Recovered/Not Resolved]
  - Fracture [Unknown]
  - Cough [Unknown]
  - Pain [Unknown]
